FAERS Safety Report 4664727-9 (Version None)
Quarter: 2005Q2

REPORT INFORMATION
  Report Type: 
  Country: None (occurrence: None)
  Receive Date: 20050516
  Receipt Date: 20050502
  Transmission Date: 20051028
  Serious: Yes (Life-Threatening, Hospitalization, Other)
  Sender: FDA-Public Use
  Company Number: HQWYE014113JUL04

PATIENT
  Age: 11 Year
  Sex: Female

DRUGS (8)
  1. RAPAMUNE [Suspect]
     Indication: IMMUNOSUPPRESSANT DRUG THERAPY
     Dosage: 3 MG 1X PER 1 DAY; ORAL
     Route: 048
     Dates: start: 20030716
  2. IMMUNOSUPPRESSIVE AGENTS (IMMUNOSUPPRESSIVE AGENTS,) [Suspect]
     Indication: IMMUNOSUPPRESSANT DRUG THERAPY
     Dosage: ^2 CAPSULES DAILY^, ORAL
     Route: 048
     Dates: start: 20040127, end: 20040503
  3. TACROLIMUS (TACROLIMUS) [Concomitant]
  4. ONE-ALPHA (ALFACALCIDOL) [Concomitant]
  5. FERROUS SULFATE TAB [Concomitant]
  6. EPOGEN [Concomitant]
  7. AMLODIPINE [Concomitant]
  8. RANITIDINE [Concomitant]

REACTIONS (10)
  - ABDOMINAL PAIN LOWER [None]
  - BIOPSY KIDNEY ABNORMAL [None]
  - BLOOD CREATININE INCREASED [None]
  - CITROBACTER INFECTION [None]
  - CULTURE URINE POSITIVE [None]
  - DIARRHOEA [None]
  - DYSURIA [None]
  - PYELONEPHRITIS [None]
  - TRANSPLANT REJECTION [None]
  - VOMITING [None]
